FAERS Safety Report 8596026 (Version 5)
Quarter: 2014Q1

REPORT INFORMATION
  Report Type: Spontaneous
  Country: US (occurrence: US)
  Receive Date: 20120605
  Receipt Date: 20140128
  Transmission Date: 20141002
  Serious: Yes (Hospitalization, Disabling, Other)
  Sender: FDA-Public Use
  Company Number: US-ASTRAZENECA-2012SE35588

PATIENT
  Age: 61 Year
  Sex: Female
  Weight: 104.3 kg

DRUGS (30)
  1. NEXIUM [Suspect]
     Indication: GASTROOESOPHAGEAL REFLUX DISEASE
     Route: 048
     Dates: start: 2001
  2. NEXIUM [Suspect]
     Indication: GASTROOESOPHAGEAL REFLUX DISEASE
     Route: 048
     Dates: start: 2001, end: 201106
  3. NEXIUM [Suspect]
     Indication: GASTROOESOPHAGEAL REFLUX DISEASE
     Route: 048
     Dates: start: 20061208
  4. NEXIUM [Suspect]
     Indication: GASTROOESOPHAGEAL REFLUX DISEASE
     Route: 048
     Dates: start: 20070111
  5. NEXIUM [Suspect]
     Indication: GASTROOESOPHAGEAL REFLUX DISEASE
     Route: 048
     Dates: start: 20070324
  6. NEXIUM [Suspect]
     Indication: GASTROOESOPHAGEAL REFLUX DISEASE
     Route: 048
     Dates: start: 20070522
  7. NEXIUM [Suspect]
     Indication: GASTROOESOPHAGEAL REFLUX DISEASE
     Route: 048
     Dates: start: 20070815
  8. NEXIUM [Suspect]
     Indication: GASTROOESOPHAGEAL REFLUX DISEASE
     Route: 048
     Dates: start: 20071125
  9. NEXIUM [Suspect]
     Indication: GASTROOESOPHAGEAL REFLUX DISEASE
     Route: 048
     Dates: start: 20080312
  10. NEXIUM [Suspect]
     Indication: GASTROOESOPHAGEAL REFLUX DISEASE
     Route: 048
     Dates: start: 20080828
  11. NEXIUM [Suspect]
     Indication: GASTROOESOPHAGEAL REFLUX DISEASE
     Route: 048
     Dates: start: 20081124
  12. NEXIUM [Suspect]
     Indication: GASTROOESOPHAGEAL REFLUX DISEASE
     Route: 048
     Dates: start: 20091001
  13. ZANTAC [Concomitant]
     Indication: ABDOMINAL DISCOMFORT
     Dates: start: 2011
  14. PREDNISONE [Concomitant]
     Indication: CHRONIC OBSTRUCTIVE PULMONARY DISEASE
     Dates: start: 20070103
  15. SINGULAIR [Concomitant]
     Indication: LUNG DISORDER
     Dates: start: 20061206
  16. MIRAPREX [Concomitant]
     Indication: MUSCLE SPASMS
     Dates: start: 20061221
  17. TRAZADONE [Concomitant]
     Indication: SLEEP DISORDER
     Dates: start: 20070122
  18. PLAVIX [Concomitant]
     Indication: CARDIAC DISORDER
  19. PRINVIL [Concomitant]
     Indication: BLOOD PRESSURE INCREASED
     Dates: start: 20070205
  20. DILTIAZEM [Concomitant]
     Indication: CARDIAC DISORDER
  21. VESICARE [Concomitant]
     Indication: URINARY INCONTINENCE
  22. VITAMIN E [Concomitant]
     Indication: MUSCLE SPASMS
  23. VITAMIN B COMPLEX [Concomitant]
     Indication: BLOOD CALCIUM
  24. LANTUS [Concomitant]
     Indication: DIABETES MELLITUS
     Dosage: 100 U/ML
     Dates: start: 20070223
  25. NOVOLOG [Concomitant]
     Indication: DIABETES MELLITUS
  26. SYMBICORT [Concomitant]
     Indication: CHRONIC OBSTRUCTIVE PULMONARY DISEASE
  27. GLUCOSAMINE [Concomitant]
     Indication: ARTHRALGIA
  28. ALBUTEROL [Concomitant]
     Dosage: 200
     Dates: start: 20061209
  29. ZYRTEC [Concomitant]
     Dates: start: 20070111
  30. WARFARIN [Concomitant]
     Dates: start: 20070328

REACTIONS (15)
  - Upper limb fracture [Unknown]
  - Lumbar vertebral fracture [Unknown]
  - Road traffic accident [Unknown]
  - Ligament sprain [Unknown]
  - Fracture [Unknown]
  - Periarthritis [Unknown]
  - Osteonecrosis [Unknown]
  - Humerus fracture [Unknown]
  - Joint injury [Not Recovered/Not Resolved]
  - Thoracic vertebral fracture [Unknown]
  - Osteoporosis [Unknown]
  - Limb deformity [Not Recovered/Not Resolved]
  - Arthralgia [Unknown]
  - Fall [Unknown]
  - Osteopenia [Unknown]
